FAERS Safety Report 6490135-4 (Version None)
Quarter: 2009Q4

REPORT INFORMATION
  Report Type: 
  Country: None (occurrence: None)
  Receive Date: 20091211
  Receipt Date: 20090604
  Transmission Date: 20100525
  Serious: No
  Sender: FDA-Public Use
  Company Number: A0788830A

PATIENT
  Age: 55 Year
  Sex: Female

DRUGS (1)
  1. FLONASE [Suspect]
     Indication: ILL-DEFINED DISORDER
     Dosage: 2SPR PER DAY
     Route: 045
     Dates: start: 20090530, end: 20090601

REACTIONS (1)
  - INSOMNIA [None]
